FAERS Safety Report 17059575 (Version 1)
Quarter: 2019Q4

REPORT INFORMATION
  Report Type: Spontaneous
  Country: US (occurrence: US)
  Receive Date: 20191121
  Receipt Date: 20191121
  Transmission Date: 20200122
  Serious: Yes (Other)
  Sender: FDA-Public Use
  Company Number: None

PATIENT
  Age: 68 Year
  Sex: Male
  Weight: 85.5 kg

DRUGS (15)
  1. FLUTICASONE. [Concomitant]
     Active Substance: FLUTICASONE
  2. BAYER LOW DOSE [Concomitant]
     Active Substance: ASPIRIN
  3. LISONPRIL [Concomitant]
     Active Substance: LISINOPRIL
  4. CRESTOR AZELESTING HYDROCHLORIDE [Concomitant]
  5. AMOX CLAV [Concomitant]
     Active Substance: AMOXICILLIN\CLAVULANATE POTASSIUM
  6. METOPROLOL. [Concomitant]
     Active Substance: METOPROLOL
  7. CLOPIDOGREL [Suspect]
     Active Substance: CLOPIDOGREL BISULFATE
     Indication: STENT PLACEMENT
     Dosage: ?          QUANTITY:30 TABLET(S);?
     Route: 048
     Dates: start: 20190919
  8. CENTRUM SILVER [Concomitant]
     Active Substance: MINERALS\VITAMINS
  9. PANTOPRAZOLE [Concomitant]
     Active Substance: PANTOPRAZOLE
  10. VITAMIN D3 [Concomitant]
     Active Substance: CHOLECALCIFEROL
  11. COENZYME Q10 [Concomitant]
     Active Substance: UBIDECARENONE
  12. LEVOTHYROXINE. [Concomitant]
     Active Substance: LEVOTHYROXINE
  13. FLAXSEED [Concomitant]
     Active Substance: FLAX SEED
  14. HYDROCODONE [Concomitant]
     Active Substance: HYDROCODONE
  15. MONTOLUKAST [Concomitant]

REACTIONS (5)
  - Headache [None]
  - Abdominal pain [None]
  - Dyspnoea [None]
  - Asthenia [None]
  - Diarrhoea [None]

NARRATIVE: CASE EVENT DATE: 20190919
